FAERS Safety Report 7941769-9 (Version None)
Quarter: 2011Q4

REPORT INFORMATION
  Report Type: 
  Country: None (occurrence: None)
  Receive Date: 20111128
  Receipt Date: 20111004
  Transmission Date: 20120403
  Serious: No
  Sender: FDA-Public Use
  Company Number: US-BAYER-2011-096061

PATIENT
  Age: 28 Year
  Sex: Male
  Weight: 118 kg

DRUGS (2)
  1. MULTI-VITAMIN [Concomitant]
  2. ALEVE (CAPLET) [Suspect]
     Indication: HEADACHE
     Dosage: 4 DF, ONCE
     Route: 048
     Dates: start: 20111004

REACTIONS (1)
  - NO ADVERSE EVENT [None]
